FAERS Safety Report 9236777 (Version 3)
Quarter: 2014Q1

REPORT INFORMATION
  Report Type: Spontaneous
  Country: US (occurrence: US)
  Receive Date: 20130416
  Receipt Date: 20140218
  Transmission Date: 20141002
  Serious: Yes (Other)
  Sender: FDA-Public Use
  Company Number: US-RB-049768-13

PATIENT
  Age: 26 Year
  Sex: Female

DRUGS (3)
  1. SUBUTEX [Suspect]
     Indication: PRODUCT USED FOR UNKNOWN INDICATION
     Dosage: DOSING DETAILS UNKNOWN
     Route: 060
     Dates: start: 20130206
  2. SUBOXONE FILM [Suspect]
     Indication: PRODUCT USED FOR UNKNOWN INDICATION
     Dosage: SUBOXONE FILM; RECEIVED 8 MGS EITHER DAILY OR TWICE A DAY BEFORE SWITCHING TO SUBUTEX
     Route: 060
     Dates: start: 20130110, end: 20130205
  3. NICOTINE [Suspect]
     Indication: PRODUCT USED FOR UNKNOWN INDICATION
     Dosage: DOSING DETAILS UNKNOWN
     Route: 055

REACTIONS (4)
  - Maternal exposure during pregnancy [Recovered/Resolved]
  - Amniotic fluid volume decreased [Recovered/Resolved]
  - Foetal distress syndrome [Recovered/Resolved]
  - Premature labour [Recovered/Resolved]
